FAERS Safety Report 9440513 (Version 2)
Quarter: 2013Q3

REPORT INFORMATION
  Report Type: Spontaneous
  Country: CN (occurrence: CN)
  Receive Date: 20130805
  Receipt Date: 20130812
  Transmission Date: 20140515
  Serious: Yes (Hospitalization, Other)
  Sender: FDA-Public Use
  Company Number: CN-PFIZER INC-2013222608

PATIENT
  Age: 45 Year
  Sex: Male

DRUGS (2)
  1. PANTOLOC [Suspect]
     Indication: ULCER
     Dosage: 80 MG, 1X/DAY
     Route: 041
     Dates: start: 20070628, end: 20070630
  2. SODIUM CHLORIDE [Concomitant]
     Dosage: 100 ML 0.9%
     Route: 041
     Dates: start: 20070820

REACTIONS (4)
  - Blood pressure decreased [Recovered/Resolved]
  - Anaphylactic shock [Recovered/Resolved]
  - Abdominal pain [Recovered/Resolved]
  - Irritability [Recovered/Resolved]
